FAERS Safety Report 10504177 (Version 3)
Quarter: 2014Q4

REPORT INFORMATION
  Report Type: Spontaneous
  Country: US (occurrence: US)
  Receive Date: 20141008
  Receipt Date: 20141112
  Transmission Date: 20150528
  Serious: Yes (Other)
  Sender: FDA-Public Use
  Company Number: US-AMGEN-USASP2014076249

PATIENT
  Age: 71 Year
  Sex: Female
  Weight: 100 kg

DRUGS (5)
  1. RITUXAN [Concomitant]
     Active Substance: RITUXIMAB
  2. NPLATE [Suspect]
     Active Substance: ROMIPLOSTIM
     Indication: IMMUNE THROMBOCYTOPENIC PURPURA
     Dosage: 1 MUG/KG, QWK
     Route: 058
     Dates: start: 20140905
  3. IMMUNOGLOBULIN                     /00025201/ [Concomitant]
     Active Substance: HUMAN IMMUNOGLOBULIN G
  4. PREDNISONE. [Concomitant]
     Active Substance: PREDNISONE
     Indication: PLATELET COUNT ABNORMAL
     Dosage: 30 MG, QD
     Dates: start: 20140601
  5. PREDNISONE. [Concomitant]
     Active Substance: PREDNISONE
     Indication: IMMUNE THROMBOCYTOPENIC PURPURA

REACTIONS (6)
  - Splenectomy [Unknown]
  - Platelet count decreased [Unknown]
  - Therapeutic response decreased [Unknown]
  - Platelet count abnormal [Unknown]
  - Pulmonary embolism [Unknown]
  - Deep vein thrombosis [Unknown]

NARRATIVE: CASE EVENT DATE: 20140915
